FAERS Safety Report 13406377 (Version 2)
Quarter: 2020Q4

REPORT INFORMATION
  Report Type: Spontaneous
  Country: US (occurrence: US)
  Receive Date: 20170405
  Receipt Date: 20201127
  Transmission Date: 20210113
  Serious: Yes (Death, Hospitalization, Other)
  Sender: FDA-Public Use
  Company Number: US-AMGEN-USASP2017051358

PATIENT
  Age: 52 Year
  Sex: Female

DRUGS (1)
  1. CARFILZOMIB [Suspect]
     Active Substance: CARFILZOMIB
     Indication: PLASMA CELL MYELOMA
     Dosage: UNK
     Route: 065

REACTIONS (3)
  - Chronic obstructive pulmonary disease [Unknown]
  - Posterior reversible encephalopathy syndrome [Unknown]
  - Death [Fatal]
